FAERS Safety Report 6823455-1 (Version None)
Quarter: 2010Q3

REPORT INFORMATION
  Report Type: 
  Country: None (occurrence: None)
  Receive Date: 20100708
  Receipt Date: 20100628
  Transmission Date: 20110219
  Serious: Yes (Hospitalization)
  Sender: FDA-Public Use
  Company Number: PHHY2010FR43106

PATIENT
  Sex: Female

DRUGS (9)
  1. EXELON [Suspect]
     Indication: DEMENTIA ALZHEIMER'S TYPE
     Dosage: UNK
     Route: 062
     Dates: end: 20100531
  2. LEVOTHYROXINE SODIUM [Suspect]
     Dosage: 1 DF, QD
     Route: 048
  3. MEMANTINE HCL [Concomitant]
  4. ESCITALOPRAM [Concomitant]
  5. CETORNAN [Concomitant]
  6. IMOVANE [Concomitant]
  7. DIFFU K [Concomitant]
  8. PLAVIX [Concomitant]
  9. AMLOR [Concomitant]

REACTIONS (5)
  - BLOOD POTASSIUM DECREASED [None]
  - DIARRHOEA [None]
  - GENERAL PHYSICAL HEALTH DETERIORATION [None]
  - PHOBIA [None]
  - WEIGHT DECREASED [None]
